FAERS Safety Report 19282811 (Version 1)
Quarter: 2021Q2

REPORT INFORMATION
  Report Type: Spontaneous
  Country: CA (occurrence: CA)
  Receive Date: 20210520
  Receipt Date: 20210520
  Transmission Date: 20210717
  Serious: Yes (Other)
  Sender: FDA-Public Use
  Company Number: CA-BAUSCH-BL-2021-016915

PATIENT
  Age: 58 Year
  Sex: Female

DRUGS (1)
  1. JUBLIA [Suspect]
     Active Substance: EFINACONAZOLE
     Indication: ONYCHOMYCOSIS
     Route: 065

REACTIONS (4)
  - Cellulitis [Unknown]
  - Beta haemolytic streptococcal infection [Unknown]
  - Application site dermatitis [Unknown]
  - Localised infection [Unknown]
